FAERS Safety Report 10861429 (Version 2)
Quarter: 2015Q2

REPORT INFORMATION
  Report Type: Spontaneous
  Country: DE (occurrence: DE)
  Receive Date: 20150224
  Receipt Date: 20150407
  Transmission Date: 20150821
  Serious: Yes (Other)
  Sender: FDA-Public Use
  Company Number: DE-JNJFOC-20150213642

PATIENT
  Age: 78 Year
  Sex: Male
  Weight: 68.93 kg

DRUGS (3)
  1. XARELTO [Suspect]
     Active Substance: RIVAROXABAN
     Indication: CEREBROVASCULAR ACCIDENT PROPHYLAXIS
     Route: 048
     Dates: start: 20150121, end: 20150206
  2. MARCUMAR [Concomitant]
     Active Substance: PHENPROCOUMON
     Indication: PRODUCT USED FOR UNKNOWN INDICATION
     Route: 065
     Dates: start: 20150202, end: 20150206
  3. XARELTO [Suspect]
     Active Substance: RIVAROXABAN
     Indication: ATRIAL FIBRILLATION
     Route: 048
     Dates: start: 20150121, end: 20150206

REACTIONS (2)
  - International normalised ratio increased [Unknown]
  - International normalised ratio increased [Unknown]

NARRATIVE: CASE EVENT DATE: 20150206
